FAERS Safety Report 6693148-2 (Version None)
Quarter: 2010Q2

REPORT INFORMATION
  Report Type: 
  Country: None (occurrence: None)
  Receive Date: 20100422
  Receipt Date: 20100412
  Transmission Date: 20101027
  Serious: Yes (Other)
  Sender: FDA-Public Use
  Company Number: US-ELI_LILLY_AND_COMPANY-US201004003166

PATIENT
  Sex: Female

DRUGS (9)
  1. BYETTA [Suspect]
     Dosage: 5 UG, UNK
  2. BYETTA [Suspect]
     Dosage: 10 UG, 2/D
     Dates: end: 20090930
  3. GLUCOVANCE [Concomitant]
  4. ACCUPRIL [Concomitant]
  5. ASPIRIN [Concomitant]
  6. MULTI-VITAMIN [Concomitant]
  7. LIPITOR [Concomitant]
  8. SYNTHROID [Concomitant]
  9. TRICOR [Concomitant]

REACTIONS (1)
  - PANCREATITIS [None]
